FAERS Safety Report 23483004 (Version 3)
Quarter: 2024Q1

REPORT INFORMATION
  Report Type: Spontaneous
  Country: NL (occurrence: NL)
  Receive Date: 20240205
  Receipt Date: 20240320
  Transmission Date: 20240410
  Serious: Yes (Other)
  Sender: FDA-Public Use
  Company Number: NL-OTSUKA-2023_028508

PATIENT
  Sex: Male
  Weight: 106 kg

DRUGS (5)
  1. ABILIFY [Suspect]
     Active Substance: ARIPIPRAZOLE
     Indication: Product used for unknown indication
     Dosage: 15 MG, QD
     Route: 065
     Dates: end: 202309
  2. ALUMINUM HYDROXIDE\MAGNESIUM HYDROXIDE [Suspect]
     Active Substance: ALUMINUM HYDROXIDE\MAGNESIUM HYDROXIDE
     Indication: Product used for unknown indication
     Dosage: UNK
     Route: 065
  3. VITAMIN A PALMITATE [Concomitant]
     Active Substance: VITAMIN A PALMITATE
     Indication: Product used for unknown indication
     Dosage: UNK
     Route: 065
  4. TAMSULOSIN [Concomitant]
     Active Substance: TAMSULOSIN
     Indication: Product used for unknown indication
     Dosage: UNK
     Route: 065
  5. NAPROXEN [Concomitant]
     Active Substance: NAPROXEN
     Indication: Product used for unknown indication
     Dosage: UNK
     Route: 065

REACTIONS (17)
  - Bladder cancer [Unknown]
  - Diabetes mellitus [Unknown]
  - Mass [Unknown]
  - Food allergy [Unknown]
  - Adverse drug reaction [Unknown]
  - Exercise tolerance decreased [Unknown]
  - Illness [Unknown]
  - Logorrhoea [Unknown]
  - Discomfort [Unknown]
  - Psychotic disorder [Unknown]
  - Overweight [Unknown]
  - Dyspnoea [Unknown]
  - Blood glucose fluctuation [Unknown]
  - Parkinsonism [Unknown]
  - Insomnia [Unknown]
  - Hyperhidrosis [Unknown]
  - Weight increased [Unknown]
